FAERS Safety Report 10221777 (Version 1)
Quarter: 2014Q2

REPORT INFORMATION
  Report Type: Spontaneous
  Country: US (occurrence: US)
  Receive Date: 20140606
  Receipt Date: 20140606
  Transmission Date: 20141212
  Serious: No
  Sender: FDA-Public Use
  Company Number: US-BIOMARINAP-US-2013-101429

PATIENT
  Sex: Female

DRUGS (1)
  1. NAGLAZYME [Suspect]
     Indication: MUCOPOLYSACCHARIDOSIS VI
     Dosage: UNK UNK, QW
     Route: 041
     Dates: start: 20111231

REACTIONS (4)
  - Dizziness [Unknown]
  - Chest pain [Unknown]
  - Abdominal pain [Unknown]
  - Pyrexia [Not Recovered/Not Resolved]
